FAERS Safety Report 8000710-3 (Version None)
Quarter: 2011Q4

REPORT INFORMATION
  Report Type: 
  Country: None (occurrence: None)
  Receive Date: 20111222
  Receipt Date: 20111212
  Transmission Date: 20120403
  Serious: Yes (Other)
  Sender: FDA-Public Use
  Company Number: CA-JNJFOC-20111206691

PATIENT
  Sex: Male
  Weight: 101 kg

DRUGS (15)
  1. REMICADE [Suspect]
     Indication: CROHN'S DISEASE
     Route: 042
  2. PURINETHOL [Concomitant]
     Route: 065
  3. PREDNISONE [Concomitant]
     Route: 065
  4. NEXIUM [Concomitant]
     Route: 065
  5. HYDROMORPHONE HCL [Concomitant]
     Route: 065
  6. ALFUZOSIN HCL [Concomitant]
     Route: 065
  7. CALCIUM [Concomitant]
     Route: 065
  8. SENOKOT [Concomitant]
     Route: 065
  9. REMICADE [Suspect]
     Dosage: THIRD DOSE
     Route: 042
     Dates: start: 20111212
  10. INSULIN [Concomitant]
     Route: 065
  11. LECTOPAM TAB [Concomitant]
     Route: 065
  12. ELAVIL [Concomitant]
     Route: 065
  13. ALTACE [Concomitant]
     Route: 065
  14. DILAUDID [Concomitant]
     Route: 065
  15. CRESTOR [Concomitant]
     Route: 065

REACTIONS (1)
  - HAEMOPTYSIS [None]
